FAERS Safety Report 19432932 (Version 2)
Quarter: 2023Q1

REPORT INFORMATION
  Report Type: Spontaneous
  Country: NP (occurrence: NP)
  Receive Date: 20210617
  Receipt Date: 20230104
  Transmission Date: 20230417
  Serious: Yes (Hospitalization)
  Sender: FDA-Public Use
  Company Number: NP-PFIZER INC-2019391839

PATIENT
  Age: 56 Year
  Sex: Female

DRUGS (1)
  1. XALKORI [Suspect]
     Active Substance: CRIZOTINIB
     Indication: Non-small cell lung cancer
     Dosage: 500 MG, DAILY (2 X 250MG CAPSULES)

REACTIONS (4)
  - COVID-19 [Unknown]
  - Urinary tract infection [Unknown]
  - Pyrexia [Unknown]
  - Neoplasm progression [Unknown]

NARRATIVE: CASE EVENT DATE: 20190905
